FAERS Safety Report 8455058-X (Version None)
Quarter: 2012Q2

REPORT INFORMATION
  Report Type: 
  Country: None (occurrence: None)
  Receive Date: 20120621
  Receipt Date: 20120611
  Transmission Date: 20120825
  Serious: Yes (Other)
  Sender: FDA-Public Use
  Company Number: IT-JNJFOC-20120607228

PATIENT
  Sex: Female

DRUGS (6)
  1. VELCADE [Suspect]
     Indication: OVARIAN CANCER RECURRENT
     Dosage: EVERY 3 WEEKS ON DAYS 1, 4, 8 AND 11 AS 3-5 SECOND BOLUS
     Route: 040
  2. LOPERAMIDE [Concomitant]
     Indication: PALLIATIVE CARE
     Route: 065
  3. INDOMETHACIN [Concomitant]
     Indication: PALLIATIVE CARE
     Route: 065
  4. DOXORUBICIN HCL [Suspect]
     Indication: OVARIAN CANCER RECURRENT
     Dosage: EVERY 3 WEEKS; ON DAY FOR MORE THAN 60 MINUTES
     Route: 042
  5. DEXAMETHASONE SODIUM POSPHATE [Concomitant]
     Indication: PALLIATIVE CARE
     Route: 042
  6. PYRIDOXINE HCL [Concomitant]
     Indication: PALLIATIVE CARE
     Route: 048

REACTIONS (1)
  - VENTRICULAR HYPOKINESIA [None]
